FAERS Safety Report 4914946-9 (Version None)
Quarter: 2006Q1

REPORT INFORMATION
  Report Type: 
  Country: None (occurrence: None)
  Receive Date: 20060217
  Receipt Date: 20060213
  Transmission Date: 20060701
  Serious: Yes (Life-Threatening)
  Sender: FDA-Public Use
  Company Number: PHBS2006US02402

PATIENT
  Age: 27 Year
  Sex: Male

DRUGS (5)
  1. QUETIAPINE [Concomitant]
     Dosage: 800 MG/DAY
  2. QUETIAPINE [Concomitant]
     Dosage: TAPERED TO 800 MG/DAY
  3. CLOZAPINE [Suspect]
     Indication: SCHIZOAFFECTIVE DISORDER
     Dosage: TITRATED TO 200 MG B.I.D.
  4. CLOZAPINE [Suspect]
     Dosage: 300 MG/DAY
  5. CLOZAPINE [Suspect]
     Dosage: 400MG/DAY

REACTIONS (26)
  - CARDIAC FAILURE CONGESTIVE [None]
  - CATHETERISATION CARDIAC [None]
  - CHEST PAIN [None]
  - DISORIENTATION [None]
  - DYSARTHRIA [None]
  - ECHOCARDIOGRAM ABNORMAL [None]
  - EJECTION FRACTION DECREASED [None]
  - ELECTROCARDIOGRAM T WAVE INVERSION [None]
  - EOSINOPHIL PERCENTAGE INCREASED [None]
  - EOSINOPHILIA [None]
  - INFLUENZA LIKE ILLNESS [None]
  - LETHARGY [None]
  - LEUKOCYTOSIS [None]
  - MENTAL STATUS CHANGES [None]
  - MYOCARDITIS [None]
  - NASAL CONGESTION [None]
  - PAIN [None]
  - PERICARDIAL EFFUSION [None]
  - PERICARDITIS [None]
  - PYREXIA [None]
  - SEDATION [None]
  - SINUS TACHYCARDIA [None]
  - THROAT IRRITATION [None]
  - TROPONIN INCREASED [None]
  - VENTRICULAR HYPERTROPHY [None]
  - VENTRICULAR HYPOKINESIA [None]
